FAERS Safety Report 16794993 (Version 3)
Quarter: 2019Q3

REPORT INFORMATION
  Report Type: Spontaneous
  Country: US (occurrence: US)
  Receive Date: 20190911
  Receipt Date: 20190924
  Transmission Date: 20191005
  Serious: No
  Sender: FDA-Public Use
  Company Number: US-PFIZER INC-2019391004

PATIENT
  Age: 56 Year
  Sex: Female

DRUGS (1)
  1. XELJANZ XR [Suspect]
     Active Substance: TOFACITINIB CITRATE
     Dosage: 11 MG, UNK
     Dates: start: 201906

REACTIONS (6)
  - Sensitivity to weather change [Unknown]
  - Pain in extremity [Unknown]
  - Condition aggravated [Unknown]
  - Joint swelling [Unknown]
  - Gait disturbance [Unknown]
  - Arthralgia [Unknown]
